FAERS Safety Report 9120202 (Version 1)
Quarter: 2013Q1

REPORT INFORMATION
  Report Type: Spontaneous
  Country: BE (occurrence: IT)
  Receive Date: 20130226
  Receipt Date: 20130226
  Transmission Date: 20140127
  Serious: Yes (Death, Hospitalization)
  Sender: FDA-Public Use
  Company Number: IT-PFIZER INC-2013063867

PATIENT
  Age: 40 Year
  Sex: Female

DRUGS (2)
  1. VENLAFAXINE HYDROCHLORIDE [Suspect]
     Indication: DEPRESSION
     Dosage: 150 MG, 2X/DAY (WITH FOOD)
  2. VENLAFAXINE HYDROCHLORIDE [Suspect]
     Dosage: 12 G, UNK

REACTIONS (5)
  - Cardiac arrest [Fatal]
  - Myocardial infarction [Fatal]
  - Ventricle rupture [Fatal]
  - Suicide attempt [Unknown]
  - Intentional overdose [Unknown]
